FAERS Safety Report 14780457 (Version 5)
Quarter: 2018Q2

REPORT INFORMATION
  Report Type: Spontaneous
  Country: DE (occurrence: DE)
  Receive Date: 20180419
  Receipt Date: 20180626
  Transmission Date: 20180711
  Serious: Yes (Hospitalization)
  Sender: FDA-Public Use
  Company Number: PHHY2018DE027014

PATIENT
  Sex: Male

DRUGS (27)
  1. PEGFILGRASTIM [Suspect]
     Active Substance: PEGFILGRASTIM
     Dosage: UNK, D4 FOR 1 DAY
     Route: 058
     Dates: start: 20180224
  2. VINCRISTINE [Suspect]
     Active Substance: VINCRISTINE
     Dosage: UNK, Q2W
     Route: 042
     Dates: start: 20180222
  3. PREDNISONE. [Suspect]
     Active Substance: PREDNISONE
     Indication: B-CELL LYMPHOMA
     Dosage: 500 MG, Q2W
     Route: 048
     Dates: start: 20171221, end: 20171224
  4. PREDNISONE. [Suspect]
     Active Substance: PREDNISONE
     Dosage: 500 MG, Q2W
     Route: 048
     Dates: start: 20180123, end: 20180127
  5. SIMVASTATIN. [Concomitant]
     Active Substance: SIMVASTATIN
     Indication: CORONARY ARTERY DISEASE
     Dosage: 20 MG, QD
     Route: 048
  6. LERCANIDIPINE [Concomitant]
     Active Substance: LERCANIDIPINE
     Indication: CORONARY ARTERY DISEASE
     Dosage: 20 MG, QD
     Route: 048
  7. CANDESARTAN. [Concomitant]
     Active Substance: CANDESARTAN
     Indication: HYPERTENSION
     Dosage: 1 OT, QD (32/25 MG)
     Route: 048
  8. DOXORUBICIN [Suspect]
     Active Substance: DOXORUBICIN
     Indication: B-CELL LYMPHOMA
     Dosage: 100 MG, Q2W
     Route: 042
     Dates: start: 20171220, end: 20171220
  9. CYCLOPHOSPHAMIDE. [Suspect]
     Active Substance: CYCLOPHOSPHAMIDE
     Dosage: 1460 MG, Q2W
     Route: 042
     Dates: start: 20180123, end: 20180123
  10. BISOPROLOL [Concomitant]
     Active Substance: BISOPROLOL
     Indication: HYPERTENSION
     Dosage: 5 MG, QD
     Route: 048
  11. RITUXIMAB. [Suspect]
     Active Substance: RITUXIMAB
     Dosage: 760 MG, Q2W
     Route: 042
     Dates: start: 20180221
  12. DOXORUBICIN [Suspect]
     Active Substance: DOXORUBICIN
     Dosage: 98 MG, Q2W
     Route: 042
     Dates: start: 20180123, end: 20180123
  13. DOXORUBICIN [Suspect]
     Active Substance: DOXORUBICIN
     Dosage: UNK, Q2W
     Route: 042
     Dates: start: 20180222
  14. CYCLOPHOSPHAMIDE. [Suspect]
     Active Substance: CYCLOPHOSPHAMIDE
     Indication: B-CELL LYMPHOMA
     Dosage: 1520 MG, Q2W
     Route: 042
     Dates: start: 20171220, end: 20171220
  15. RITUXIMAB. [Suspect]
     Active Substance: RITUXIMAB
     Indication: B-CELL LYMPHOMA
     Dosage: 760 MG, Q2W
     Route: 042
     Dates: start: 20171219, end: 20171219
  16. DOXORUBICIN [Suspect]
     Active Substance: DOXORUBICIN
     Dosage: 98 MG, Q2W
     Route: 042
     Dates: start: 20171220, end: 20171220
  17. PEGFILGRASTIM [Suspect]
     Active Substance: PEGFILGRASTIM
     Indication: B-CELL LYMPHOMA
     Dosage: UNK (D4 FOR 1 DAY)
     Route: 058
     Dates: start: 20171223, end: 20171223
  18. PEGFILGRASTIM [Suspect]
     Active Substance: PEGFILGRASTIM
     Dosage: UNK (D4 FOR 1 DAY)
     Route: 058
     Dates: start: 20180126, end: 20180126
  19. CYCLOPHOSPHAMIDE. [Suspect]
     Active Substance: CYCLOPHOSPHAMIDE
     Dosage: 1460 UNK, UNK
     Route: 042
     Dates: start: 20171220, end: 20171220
  20. PREDNISONE. [Suspect]
     Active Substance: PREDNISONE
     Dosage: UNK, Q2W
     Route: 048
     Dates: start: 20180222
  21. RITUXIMAB. [Suspect]
     Active Substance: RITUXIMAB
     Dosage: 760 MG, Q2W, CYCLE 4
     Route: 042
     Dates: start: 20180122, end: 20180122
  22. VINCRISTINE [Suspect]
     Active Substance: VINCRISTINE
     Dosage: 3.26 MG, Q2W
     Route: 042
     Dates: start: 20180123, end: 20180123
  23. AMIODARONE [Concomitant]
     Active Substance: AMIODARONE
     Indication: HYPERTENSION
     Dosage: 200 MG, QD
     Route: 048
  24. DOXORUBICIN [Suspect]
     Active Substance: DOXORUBICIN
     Dosage: 100 MG, Q2W
     Route: 042
     Dates: start: 20180123, end: 20180123
  25. CYCLOPHOSPHAMIDE. [Suspect]
     Active Substance: CYCLOPHOSPHAMIDE
     Dosage: UNK, Q2W
     Route: 042
     Dates: start: 20180222
  26. VINCRISTINE [Suspect]
     Active Substance: VINCRISTINE
     Indication: B-CELL LYMPHOMA
     Dosage: 3.39 MG, Q2W
     Route: 042
     Dates: start: 20171220, end: 20171220
  27. TORASEMIDE [Concomitant]
     Active Substance: TORSEMIDE
     Indication: PRODUCT USED FOR UNKNOWN INDICATION
     Dosage: 5 MG, UNK
     Route: 065

REACTIONS (2)
  - Diarrhoea [Recovered/Resolved]
  - Diarrhoea [Recovered/Resolved]

NARRATIVE: CASE EVENT DATE: 20171226
